FAERS Safety Report 10333549 (Version 2)
Quarter: 2014Q4

REPORT INFORMATION
  Report Type: Spontaneous
  Country: US (occurrence: US)
  Receive Date: 20140722
  Receipt Date: 20141112
  Transmission Date: 20150528
  Serious: No
  Sender: FDA-Public Use
  Company Number: US-009507513-1407USA005423

PATIENT
  Sex: Female

DRUGS (1)
  1. IMPLANON [Suspect]
     Active Substance: ETONOGESTREL
     Indication: CONTRACEPTION
     Dosage: UNK
     Route: 030
     Dates: start: 2010

REACTIONS (4)
  - Incorrect route of drug administration [Unknown]
  - Device deployment issue [Unknown]
  - Incorrect drug administration duration [Unknown]
  - Medical device complication [Unknown]

NARRATIVE: CASE EVENT DATE: 2010
